FAERS Safety Report 14078887 (Version 3)
Quarter: 2017Q4

REPORT INFORMATION
  Report Type: Spontaneous
  Country: GB (occurrence: GB)
  Receive Date: 20171012
  Receipt Date: 20171018
  Transmission Date: 20180321
  Serious: Yes (Hospitalization)
  Sender: FDA-Public Use
  Company Number: GB-MYLANLABS-2017M1063264

PATIENT
  Age: 48 Year
  Sex: Female

DRUGS (2)
  1. CLOZARIL [Suspect]
     Active Substance: CLOZAPINE
     Indication: SCHIZOPHRENIA
     Dosage: 250 MG, PM
     Route: 048
     Dates: start: 20120713
  2. CLOZARIL [Suspect]
     Active Substance: CLOZAPINE
     Dosage: UNK
     Route: 048

REACTIONS (8)
  - Therapy cessation [Recovering/Resolving]
  - Dehydration [Unknown]
  - Prerenal failure [Unknown]
  - Malaise [Unknown]
  - Underdose [Unknown]
  - Treatment noncompliance [Unknown]
  - Paranoia [Unknown]
  - Anosognosia [Unknown]

NARRATIVE: CASE EVENT DATE: 20170927
